FAERS Safety Report 24906656 (Version 2)
Quarter: 2025Q1

REPORT INFORMATION
  Report Type: Spontaneous
  Country: IT (occurrence: IT)
  Receive Date: 20250130
  Receipt Date: 20250130
  Transmission Date: 20250409
  Serious: Yes (Hospitalization)
  Sender: TAKEDA
  Company Number: IT-IGSA-BIG0032469

PATIENT
  Age: 28 Year
  Sex: Female

DRUGS (3)
  1. ALBUMIN HUMAN [Suspect]
     Active Substance: ALBUMIN HUMAN
     Indication: Product used for unknown indication
  2. ALBUMIN HUMAN [Suspect]
     Active Substance: ALBUMIN HUMAN
     Indication: Hypoalbuminaemia
  3. SODIUM CHLORIDE [Concomitant]
     Active Substance: SODIUM CHLORIDE

REACTIONS (6)
  - Hypersensitivity [Unknown]
  - Pyrexia [Unknown]
  - Dyspnoea [Unknown]
  - Hypotension [Unknown]
  - Rash erythematous [Unknown]
  - Urticaria [Unknown]
